FAERS Safety Report 14773189 (Version 1)
Quarter: 2018Q2

REPORT INFORMATION
  Report Type: Spontaneous
  Country: US (occurrence: US)
  Receive Date: 20180411
  Receipt Date: 20180411
  Transmission Date: 20180711
  Serious: Yes (Disabling)
  Sender: FDA-Public Use
  Company Number: None

PATIENT
  Age: 39 Year
  Sex: Male
  Weight: 62.55 kg

DRUGS (10)
  1. OXYCODONE HCL 20 MG (DAZIDOX) [Suspect]
     Active Substance: OXYCODONE HYDROCHLORIDE
     Indication: RADICULOPATHY
     Dosage: ?          QUANTITY:90 TABLET(S);?
     Route: 048
     Dates: start: 20180320, end: 20180410
  2. FLEXERIL [Concomitant]
     Active Substance: CYCLOBENZAPRINE HYDROCHLORIDE
  3. ENSURES [Concomitant]
  4. OXYCODONE HCL 20 MG (DAZIDOX) [Suspect]
     Active Substance: OXYCODONE HYDROCHLORIDE
     Indication: MYALGIA
     Dosage: ?          QUANTITY:90 TABLET(S);?
     Route: 048
     Dates: start: 20180320, end: 20180410
  5. OMPROLOLE [Concomitant]
  6. OXYCODONE HCL 20 MG (DAZIDOX) [Suspect]
     Active Substance: OXYCODONE HYDROCHLORIDE
     Indication: PAIN
     Dosage: ?          QUANTITY:90 TABLET(S);?
     Route: 048
     Dates: start: 20180320, end: 20180410
  7. GABIPENTION [Concomitant]
  8. KLONIPEN [Concomitant]
  9. OXYCODONE HCL 20 MG (DAZIDOX) [Suspect]
     Active Substance: OXYCODONE HYDROCHLORIDE
     Indication: SURGERY
     Dosage: ?          QUANTITY:90 TABLET(S);?
     Route: 048
     Dates: start: 20180320, end: 20180410
  10. OXYCODONE [Concomitant]
     Active Substance: OXYCODONE

REACTIONS (3)
  - Headache [None]
  - Drug ineffective [None]
  - Product quality issue [None]

NARRATIVE: CASE EVENT DATE: 20180320
